FAERS Safety Report 4753990-1 (Version None)
Quarter: 2005Q3

REPORT INFORMATION
  Report Type: 
  Country: None (occurrence: None)
  Receive Date: 20050826
  Receipt Date: 20050816
  Transmission Date: 20060218
  Serious: Yes (Hospitalization)
  Sender: FDA-Public Use
  Company Number: US-MERCK-0508USA02727

PATIENT
  Age: 75 Year
  Sex: Female

DRUGS (10)
  1. ZOCOR [Suspect]
     Indication: BLOOD CHOLESTEROL INCREASED
     Route: 048
     Dates: end: 20050801
  2. NEXIUM [Concomitant]
     Route: 065
  3. ASPIRIN [Concomitant]
     Route: 065
  4. TORSEMIDE [Concomitant]
     Route: 065
  5. FOSAMAX [Concomitant]
     Route: 048
  6. POTASSIUM (UNSPECIFIED) [Concomitant]
     Route: 065
  7. CARDIZEM [Concomitant]
     Route: 065
  8. XANAX [Concomitant]
     Route: 065
  9. VITAMINS (UNSPECIFIED) [Concomitant]
     Route: 065
  10. CALCIUM (UNSPECIFIED) [Concomitant]
     Route: 065

REACTIONS (2)
  - ALOPECIA [None]
  - ARTHROPOD STING [None]
